FAERS Safety Report 12426045 (Version 2)
Quarter: 2016Q2

REPORT INFORMATION
  Report Type: Report from Study
  Country: US (occurrence: US)
  Receive Date: 20160601
  Receipt Date: 20160613
  Transmission Date: 20160815
  Serious: Yes (Hospitalization)
  Sender: FDA-Public Use
  Company Number: US-PURDUE-USA-2016-0131188

PATIENT
  Sex: Female

DRUGS (1)
  1. OXYCONTIN [Suspect]
     Active Substance: OXYCODONE HYDROCHLORIDE
     Indication: INTERVERTEBRAL DISC DEGENERATION
     Dosage: 80 MG, Q8H
     Route: 048
     Dates: start: 2007

REACTIONS (9)
  - Hospitalisation [Unknown]
  - Gait disturbance [Unknown]
  - Uterine prolapse [Unknown]
  - Pollakiuria [Unknown]
  - Pain [Unknown]
  - Myopathy [Unknown]
  - Sleep disorder [Unknown]
  - Bladder prolapse [Unknown]
  - Vaginal prolapse [Unknown]
